FAERS Safety Report 24527863 (Version 1)
Quarter: 2024Q4

REPORT INFORMATION
  Report Type: Spontaneous
  Country: EG (occurrence: EG)
  Receive Date: 20241021
  Receipt Date: 20241021
  Transmission Date: 20250115
  Serious: Yes (Hospitalization, Other)
  Sender: MERCK
  Company Number: EG-009507513-2302EGY008803

PATIENT
  Age: 72 Year
  Sex: Male

DRUGS (10)
  1. KEYTRUDA [Suspect]
     Active Substance: PEMBROLIZUMAB
     Indication: Squamous cell carcinoma of head and neck
     Dosage: 200 MILLIGRAM, Q3W
     Route: 042
     Dates: start: 20220508
  2. KEYTRUDA [Suspect]
     Active Substance: PEMBROLIZUMAB
     Dosage: 200 MILLIGRAM, Q3W
     Route: 042
     Dates: start: 20230502, end: 20230502
  3. TAFLUPRO PLUS [Concomitant]
     Indication: Glaucoma
  4. CONTROLOC [Concomitant]
     Active Substance: PANTOPRAZOLE SODIUM
  5. DIFLUCAN [Concomitant]
     Active Substance: FLUCONAZOLE
     Indication: Antifungal treatment
  6. METHYLPREDNISOLONE [Concomitant]
     Active Substance: METHYLPREDNISOLONE
     Dosage: ONE TAB AT MORNING AND ONE TAB AT NIGHT FOR ONE WEEK THEN HE WILL CHECK WITH THE HCP HOW TO WITHDRAW
  7. VITAMINS NOS [Concomitant]
     Active Substance: VITAMINS
     Indication: Vitamin supplementation
  8. VITAMINS NOS [Concomitant]
     Active Substance: VITAMINS
     Indication: Haemoglobin decreased
  9. VITAMINS NOS [Concomitant]
     Active Substance: VITAMINS
     Indication: Haematocrit decreased
  10. VITAMINS NOS [Concomitant]
     Active Substance: VITAMINS
     Indication: Red blood cell count decreased

REACTIONS (23)
  - Autoimmune lung disease [Recovered/Resolved]
  - Laryngeal cancer recurrent [Not Recovered/Not Resolved]
  - Dysphagia [Not Recovered/Not Resolved]
  - Pharyngeal disorder [Not Recovered/Not Resolved]
  - Gastroenteritis [Recovered/Resolved]
  - Movement disorder [Not Recovered/Not Resolved]
  - Diarrhoea [Recovered/Resolved]
  - Vomiting [Recovered/Resolved]
  - Lethargy [Recovered/Resolved]
  - Red blood cell sedimentation rate increased [Unknown]
  - Abdominal discomfort [Unknown]
  - Confusional state [Unknown]
  - Nasopharyngitis [Unknown]
  - Pyrexia [Recovered/Resolved]
  - White blood cell count increased [Unknown]
  - Haemoglobin decreased [Unknown]
  - Red blood cell count decreased [Unknown]
  - Haematocrit decreased [Unknown]
  - Eating disorder symptom [Unknown]
  - Fatigue [Not Recovered/Not Resolved]
  - Inappropriate schedule of product administration [Unknown]
  - Inappropriate schedule of product administration [Unknown]
  - Inability to afford medication [Unknown]

NARRATIVE: CASE EVENT DATE: 20230101
